FAERS Safety Report 20713494 (Version 1)
Quarter: 2022Q2

REPORT INFORMATION
  Report Type: Spontaneous
  Country: FR (occurrence: FR)
  Receive Date: 20220415
  Receipt Date: 20220415
  Transmission Date: 20220721
  Serious: Yes (Hospitalization)
  Sender: FDA-Public Use
  Company Number: None

PATIENT
  Age: 90 Year
  Sex: Female
  Weight: 57.7 kg

DRUGS (11)
  1. ATORVASTATIN [Suspect]
     Active Substance: ATORVASTATIN
     Indication: Product used for unknown indication
     Route: 048
     Dates: end: 20220104
  2. FUROSEMIDE [Suspect]
     Active Substance: FUROSEMIDE
     Indication: Hypertension
     Route: 048
  3. TRAMADOL HYDROCHLORIDE [Suspect]
     Active Substance: TRAMADOL HYDROCHLORIDE
     Indication: Osteoarthritis
     Dosage: STRENGTH: 150 MG, 150MG 2/D
     Route: 048
     Dates: end: 20220104
  4. DOMPERIDONE [Suspect]
     Active Substance: DOMPERIDONE
     Indication: Product used for unknown indication
     Dosage: 10MG 2/D
     Route: 048
     Dates: end: 20220104
  5. NEBIVOLOL HYDROCHLORIDE [Suspect]
     Active Substance: NEBIVOLOL HYDROCHLORIDE
     Indication: Hypertension
     Route: 048
  6. DAFALGAN [Suspect]
     Active Substance: ACETAMINOPHEN
     Indication: Osteoarthritis
     Dosage: 3DF/D
     Route: 048
     Dates: end: 20220104
  7. NITRAZEPAM [Suspect]
     Active Substance: NITRAZEPAM
     Indication: Insomnia
     Dosage: STRENGTH: 5 MG, SCORED TABLET
     Route: 048
     Dates: end: 20220104
  8. ZALDIAR [Suspect]
     Active Substance: ACETAMINOPHEN\TRAMADOL HYDROCHLORIDE
     Indication: Osteoarthritis
     Route: 048
     Dates: end: 20220104
  9. ZOFENOPRIL CALCIUM [Suspect]
     Active Substance: ZOFENOPRIL CALCIUM
     Indication: Hypertension
     Route: 048
     Dates: end: 20220104
  10. LEVOTHYROXINE [Concomitant]
     Active Substance: LEVOTHYROXINE
  11. PANTOPRAZOLE [Concomitant]
     Active Substance: PANTOPRAZOLE

REACTIONS (2)
  - Fall [Unknown]
  - Rhabdomyolysis [Recovered/Resolved]

NARRATIVE: CASE EVENT DATE: 20220104
